FAERS Safety Report 19725608 (Version 1)
Quarter: 2021Q3

REPORT INFORMATION
  Report Type: Spontaneous
  Country: US (occurrence: US)
  Receive Date: 20210819
  Receipt Date: 20210819
  Transmission Date: 20211014
  Serious: Yes (Other)
  Sender: FDA-Public Use
  Company Number: US-THERAPEUTICSMD-2021TMD01925

PATIENT
  Age: 67 Year
  Sex: Female
  Weight: 65.76 kg

DRUGS (5)
  1. UNSPECIFIED CHOLESTEROL MEDICINE [Concomitant]
  2. BIJUVA [Suspect]
     Active Substance: ESTRADIOL\PROGESTERONE
     Indication: HOT FLUSH
     Dosage: 1 CAPSULES, 1X/DAY
     Route: 048
     Dates: start: 201907, end: 20210609
  3. CELEBREX [Concomitant]
     Active Substance: CELECOXIB
  4. BIJUVA [Suspect]
     Active Substance: ESTRADIOL\PROGESTERONE
     Indication: AFFECTIVE DISORDER
  5. UNSPECIFIED BLOOD PRESSURE MEDICINE [Concomitant]
     Active Substance: UNSPECIFIED INGREDIENT

REACTIONS (2)
  - Product packaging difficult to open [Recovered/Resolved]
  - Invasive ductal breast carcinoma [Not Recovered/Not Resolved]

NARRATIVE: CASE EVENT DATE: 20210607
